FAERS Safety Report 11782252 (Version 1)
Quarter: 2015Q4

REPORT INFORMATION
  Report Type: Spontaneous
  Country: US (occurrence: US)
  Receive Date: 20151127
  Receipt Date: 20151127
  Transmission Date: 20160305
  Serious: Yes (Hospitalization)
  Sender: FDA-Public Use
  Company Number: US-ZYDUS-009535

PATIENT
  Age: 28 Year
  Sex: Female

DRUGS (2)
  1. CARVEDILOL/CARVEDILOL HYDROCHLODRIDE [Suspect]
     Active Substance: CARVEDILOL
     Indication: PRODUCT USED FOR UNKNOWN INDICATION
  2. FUROSEMIDE. [Suspect]
     Active Substance: FUROSEMIDE
     Indication: PRODUCT USED FOR UNKNOWN INDICATION

REACTIONS (10)
  - Postpartum haemorrhage [Unknown]
  - Maternal exposure during pregnancy [None]
  - Haemoglobin decreased [None]
  - Exposure during pregnancy [Unknown]
  - Dyspnoea [Unknown]
  - Oedema peripheral [Unknown]
  - Ejection fraction decreased [None]
  - Uterine atony [None]
  - Hypotension [Unknown]
  - Pregnancy [None]
